FAERS Safety Report 5342024-6 (Version None)
Quarter: 2007Q2

REPORT INFORMATION
  Report Type: 
  Country: None (occurrence: None)
  Receive Date: 20070601
  Receipt Date: 20070525
  Transmission Date: 20071010
  Serious: Yes (Hospitalization)
  Sender: FDA-Public Use
  Company Number: US-AVENTIS-200710291US

PATIENT
  Sex: Male
  Weight: 45.2 kg

DRUGS (6)
  1. LANTUS [Suspect]
     Indication: DIABETES MELLITUS INSULIN-DEPENDENT
     Dates: start: 20060601
  2. OPTICLIK (INSULIN INJECTION PEN) [Suspect]
     Dates: start: 20060601
  3. NOVOLOG [Concomitant]
     Dosage: DOSE: UNK
  4. HYDROCORTISONE [Concomitant]
     Dosage: DOSE: UNK
  5. PREVACID [Concomitant]
     Dosage: DOSE: UNK
  6. RANITIDINE [Concomitant]
     Dosage: DOSE: UNK

REACTIONS (5)
  - BLOOD GLUCOSE INCREASED [None]
  - DIABETIC KETOACIDOSIS [None]
  - DRUG INEFFECTIVE [None]
  - LETHARGY [None]
  - MEDICATION ERROR [None]
